FAERS Safety Report 18295376 (Version 1)
Quarter: 2020Q3

REPORT INFORMATION
  Report Type: Report from Study
  Country: None (occurrence: US)
  Receive Date: 20200922
  Receipt Date: 20200922
  Transmission Date: 20201103
  Serious: Yes (Hospitalization, Other)
  Sender: FDA-Public Use
  Company Number: US-ABBVIE-20K-163-3539022-00

PATIENT
  Age: 75 Year
  Sex: Female
  Weight: 120.76 kg

DRUGS (3)
  1. HUMIRA [Suspect]
     Active Substance: ADALIMUMAB
     Indication: RHEUMATOID ARTHRITIS
     Route: 058
     Dates: start: 2000, end: 202007
  2. HUMIRA [Suspect]
     Active Substance: ADALIMUMAB
     Indication: RHEUMATOID ARTHRITIS
     Route: 058
  3. HUMIRA [Suspect]
     Active Substance: ADALIMUMAB
     Route: 058
     Dates: start: 20200912

REACTIONS (7)
  - Ankle fracture [Recovering/Resolving]
  - Osteoarthritis [Recovered/Resolved]
  - Cystitis [Recovered/Resolved]
  - Coronary artery occlusion [Recovered/Resolved]
  - Neoplasm malignant [Recovered/Resolved]
  - Hip arthroplasty [Unknown]
  - Urinary tract infection [Unknown]

NARRATIVE: CASE EVENT DATE: 2003
